FAERS Safety Report 18436556 (Version 1)
Quarter: 2020Q4

REPORT INFORMATION
  Report Type: Spontaneous
  Country: US (occurrence: US)
  Receive Date: 20201028
  Receipt Date: 20201028
  Transmission Date: 20210114
  Serious: Yes (Other)
  Sender: FDA-Public Use
  Company Number: None

PATIENT
  Age: 52 Year

DRUGS (3)
  1. N/A [Concomitant]
     Active Substance: UNSPECIFIED INGREDIENT
  2. TAFINLAR [Suspect]
     Active Substance: DABRAFENIB MESYLATE
     Indication: THYROID CANCER
     Route: 048
     Dates: start: 20190412
  3. MEKINIST [Suspect]
     Active Substance: TRAMETINIB DIMETHYL SULFOXIDE
     Indication: THYROID CANCER
     Route: 048
     Dates: start: 20190412

REACTIONS (1)
  - Therapy interrupted [None]
